FAERS Safety Report 7257962-7 (Version None)
Quarter: 2011Q1

REPORT INFORMATION
  Report Type: 
  Country: None (occurrence: None)
  Receive Date: 20110129
  Receipt Date: 20100610
  Transmission Date: 20110831
  Serious: No
  Sender: FDA-Public Use
  Company Number: US-ABBOTT-10P-163-0650726-00

PATIENT
  Age: 31 Year
  Sex: Female

DRUGS (7)
  1. TRAZODONE [Concomitant]
     Indication: INSOMNIA
     Route: 048
  2. HUMIRA [Suspect]
     Indication: CROHN'S DISEASE
     Dates: start: 20100514
  3. BUSPIRONE [Concomitant]
     Indication: ANXIETY
  4. GUANFACINE HYDROCHLORIDE [Concomitant]
     Indication: ATTENTION DEFICIT/HYPERACTIVITY DISORDER
     Route: 048
  5. THYROID [Concomitant]
     Indication: HYPOTHYROIDISM
  6. BUPROPION HCL [Concomitant]
     Indication: DEPRESSION
     Route: 048
  7. LITHIUM [Concomitant]
     Indication: BIPOLAR DISORDER
     Route: 048

REACTIONS (3)
  - INJECTION SITE HAEMATOMA [None]
  - INJECTION SITE PAIN [None]
  - INJECTION SITE HAEMORRHAGE [None]
